FAERS Safety Report 9723264 (Version 2)
Quarter: 2015Q2

REPORT INFORMATION
  Report Type: Spontaneous
  Country: JP (occurrence: JP)
  Receive Date: 20131202
  Receipt Date: 20150407
  Transmission Date: 20150821
  Serious: Yes (Other)
  Sender: FDA-Public Use
  Company Number: JP-GILEAD-2013-0088752

PATIENT
  Age: 75 Year
  Sex: Male

DRUGS (9)
  1. EQUA [Concomitant]
     Active Substance: VILDAGLIPTIN
     Route: 048
     Dates: end: 20131012
  2. KANAMYCIN [Concomitant]
     Active Substance: KANAMYCIN\KANAMYCIN A SULFATE
     Route: 048
  3. MONILAC [Concomitant]
     Active Substance: LACTULOSE
     Route: 048
  4. HEPSERA [Suspect]
     Active Substance: ADEFOVIR DIPIVOXIL
     Indication: CHRONIC HEPATITIS B
     Dosage: 10 MG, QD
     Route: 048
  5. MONILAC [Concomitant]
     Active Substance: LACTULOSE
     Route: 048
  6. SELBEX [Concomitant]
     Active Substance: TEPRENONE
     Route: 048
  7. SELBEX [Concomitant]
     Active Substance: TEPRENONE
     Route: 048
  8. ZEFIX [Suspect]
     Active Substance: LAMIVUDINE
     Indication: CHRONIC HEPATITIS B
     Dosage: 100 MG, QD
     Route: 048
     Dates: start: 201104
  9. KANAMYCIN [Concomitant]
     Active Substance: KANAMYCIN\KANAMYCIN A SULFATE
     Route: 048

REACTIONS (2)
  - Fanconi syndrome acquired [Recovered/Resolved]
  - Rhabdomyolysis [Recovered/Resolved]

NARRATIVE: CASE EVENT DATE: 20131029
